FAERS Safety Report 21998962 (Version 1)
Quarter: 2023Q1

REPORT INFORMATION
  Report Type: Spontaneous
  Country: US (occurrence: None)
  Receive Date: 20230214
  Receipt Date: 20230214
  Transmission Date: 20230418
  Serious: No
  Sender: FDA-Public Use
  Company Number: None

PATIENT
  Age: 56 Year
  Sex: Female

DRUGS (1)
  1. OTEZLA [Suspect]
     Active Substance: APREMILAST
     Indication: Psoriatic arthropathy
     Dosage: OTHER QUANTITY : TAKE 1 TABLET;?FREQUENCY : TWICE A DAY;?
     Route: 048
     Dates: start: 202302

REACTIONS (1)
  - COVID-19 [None]
